FAERS Safety Report 8467002-X (Version None)
Quarter: 2012Q2

REPORT INFORMATION
  Report Type: 
  Country: None (occurrence: None)
  Receive Date: 20120626
  Receipt Date: 20120611
  Transmission Date: 20120825
  Serious: Yes (Other)
  Sender: FDA-Public Use
  Company Number: US-ARROW GEN-2012-10111

PATIENT
  Sex: Male
  Weight: 105 kg

DRUGS (2)
  1. CIPROFLOXACIN HCL [Suspect]
     Indication: ANTIBIOTIC PROPHYLAXIS
     Dosage: 2 TABS DAILY
     Route: 048
     Dates: start: 20120322, end: 20120324
  2. NASAL SPRAY II [Concomitant]
     Indication: NASAL POLYPS
     Dosage: 2 SPRAYS TWICE A DAY
     Route: 045
     Dates: start: 20120301

REACTIONS (5)
  - GAIT DISTURBANCE [None]
  - MUSCULAR WEAKNESS [None]
  - DEEP VEIN THROMBOSIS [None]
  - LIMB DISCOMFORT [None]
  - OEDEMA PERIPHERAL [None]
